FAERS Safety Report 13739321 (Version 1)
Quarter: 2017Q3

REPORT INFORMATION
  Report Type: Spontaneous
  Country: BR (occurrence: BR)
  Receive Date: 20170710
  Receipt Date: 20170710
  Transmission Date: 20171127
  Serious: Yes (Death)
  Sender: FDA-Public Use
  Company Number: PHHY2012BR068706

PATIENT
  Age: 83 Year
  Sex: Female

DRUGS (3)
  1. HYDERGINE [Suspect]
     Active Substance: ERGOLOID MESYLATES
     Indication: PROPHYLAXIS
     Dosage: 1 DF, (4.5 MG), A DAY
  2. EBIX [Concomitant]
     Active Substance: MEMANTINE HYDROCHLORIDE
     Indication: PROPHYLAXIS
     Dosage: 2 DF (1 TABLET IN THE MORNING AND 1TABLET AT NIGHT)
     Route: 048
     Dates: end: 20130107
  3. HYDERGINE [Suspect]
     Active Substance: ERGOLOID MESYLATES
     Indication: PROPHYLAXIS
     Dosage: 1 DF (6MG AT NIGHT) QD

REACTIONS (3)
  - Arrhythmia [Fatal]
  - Memory impairment [Unknown]
  - Wrong drug administered [Unknown]
